FAERS Safety Report 4838180-6 (Version None)
Quarter: 2005Q4

REPORT INFORMATION
  Report Type: 
  Country: None (occurrence: None)
  Receive Date: 20051122
  Receipt Date: 20051108
  Transmission Date: 20060501
  Serious: Yes (Hospitalization)
  Sender: FDA-Public Use
  Company Number: FR-2005-024106

PATIENT
  Age: 63 Year
  Sex: Male

DRUGS (7)
  1. SOTALOL HCL [Suspect]
     Dosage: 160 MG, 1X/DAY, ORAL
     Route: 048
     Dates: end: 20050929
  2. GLUCOPHAGE [Suspect]
     Indication: DIABETES MELLITUS
     Dosage: 1000 MG, 1X/DAY, ORAL
     Route: 048
     Dates: end: 20050929
  3. APROVEL (IRBESARTAN) [Suspect]
     Indication: ESSENTIAL HYPERTENSION
     Dosage: 1X/DAY, ORAL
     Route: 048
     Dates: end: 20050929
  4. AMARYL [Suspect]
     Indication: DIABETES MELLITUS
     Dosage: 4 MG, 1X/DAY, ORAL
     Route: 048
     Dates: end: 20050929
  5. INDAPAMIDE [Suspect]
     Indication: ESSENTIAL HYPERTENSION
     Dosage: 1X/DAY, ORAL
     Route: 048
     Dates: end: 20050929
  6. LIPANTHYL ^BRISTOL-MYERS SQUIBB^ (FENOFIBRATE) [Suspect]
     Indication: HYPERTRIGLYCERIDAEMIA
     Dosage: 200 MG, 1X/DAY, ORAL
     Route: 047
     Dates: end: 20050929
  7. MOXONIDINE (MOXONIDINE) [Suspect]
     Indication: ESSENTIAL HYPERTENSION
     Dosage: 4 MG, 1X/DAY, ORAL
     Route: 048
     Dates: end: 20050929

REACTIONS (9)
  - BLOOD PRESSURE ABNORMAL [None]
  - DEHYDRATION [None]
  - DIARRHOEA [None]
  - HAEMODIALYSIS [None]
  - HYPOVOLAEMIA [None]
  - NAUSEA [None]
  - RENAL FAILURE ACUTE [None]
  - RHABDOMYOLYSIS [None]
  - VOMITING [None]
